FAERS Safety Report 18443850 (Version 1)
Quarter: 2020Q4

REPORT INFORMATION
  Report Type: Spontaneous
  Country: FR (occurrence: FR)
  Receive Date: 20201030
  Receipt Date: 20201030
  Transmission Date: 20210114
  Serious: Yes (Hospitalization)
  Sender: FDA-Public Use
  Company Number: FR-TEVA-2020-FR-1842065

PATIENT
  Age: 49 Year
  Sex: Male

DRUGS (4)
  1. XANAX [Suspect]
     Active Substance: ALPRAZOLAM
     Dosage: 7 TO 11 TABLETS PER DAY
     Route: 048
     Dates: start: 2014, end: 20200901
  2. DONORMYL [DOXYLAMINE SUCCINATE] [Suspect]
     Active Substance: DOXYLAMINE SUCCINATE
     Dosage: 4 TO 5 TABLETS PER DAY
     Route: 048
     Dates: start: 2020, end: 20200901
  3. TRAMADOL (CHLORHYDRATE DE) [Suspect]
     Active Substance: TRAMADOL HYDROCHLORIDE
     Dosage: 50 MG
     Route: 048
     Dates: start: 2019
  4. NOCTAMIDE 2 MG, COMPRIME SECABLE [Suspect]
     Active Substance: LORMETAZEPAM
     Dosage: 3 TO 4 TABLETS PER DAY
     Route: 048
     Dates: start: 2020, end: 20200901

REACTIONS (2)
  - Intentional product misuse [Recovering/Resolving]
  - Withdrawal syndrome [Recovering/Resolving]

NARRATIVE: CASE EVENT DATE: 2020
